FAERS Safety Report 7995174-X (Version None)
Quarter: 2011Q4

REPORT INFORMATION
  Report Type: 
  Country: None (occurrence: None)
  Receive Date: 20111220
  Receipt Date: 20111214
  Transmission Date: 20120403
  Serious: Yes (Other)
  Sender: FDA-Public Use
  Company Number: JP-GLAXOSMITHKLINE-B0769633A

PATIENT
  Sex: Male

DRUGS (5)
  1. DUTASTERIDE [Suspect]
     Indication: BENIGN PROSTATIC HYPERPLASIA
     Dosage: .5MG PER DAY
     Route: 048
     Dates: start: 20101201
  2. CHINESE MEDICINE [Concomitant]
     Route: 048
  3. HARNAL D [Concomitant]
     Route: 048
  4. EVIPROSTAT [Concomitant]
     Route: 048
  5. CERNILTON [Concomitant]
     Route: 048

REACTIONS (2)
  - GAMMA-GLUTAMYLTRANSFERASE INCREASED [None]
  - ALANINE AMINOTRANSFERASE INCREASED [None]
